FAERS Safety Report 10779015 (Version 1)
Quarter: 2015Q1

REPORT INFORMATION
  Report Type: Spontaneous
  Country: US (occurrence: None)
  Receive Date: 20150206
  Receipt Date: 20150206
  Transmission Date: 20150721
  Serious: Yes (Hospitalization)
  Sender: FDA-Public Use
  Company Number: US-001659

PATIENT
  Sex: Female

DRUGS (3)
  1. MACRODANTIN [Suspect]
     Active Substance: NITROFURANTOIN
     Indication: PRODUCT USED FOR UNKNOWN INDICATION
     Dosage: DF
     Dates: start: 201501
  2. GATTEX [Suspect]
     Active Substance: TEDUGLUTIDE\WATER
     Indication: SHORT-BOWEL SYNDROME
     Dosage: DF SUBCUTANEOUS
     Route: 058
     Dates: start: 20140408, end: 201501
  3. SOLUTIONS FOR PARENTERAL NUTRITION [Concomitant]
     Active Substance: AMINO ACIDS\DEXTROSE\ELECTROLYTES NOS

REACTIONS (6)
  - Urinary tract infection [None]
  - Sinusitis [None]
  - Weight decreased [None]
  - Bronchitis [None]
  - Dehydration [None]
  - Ulcer [None]
